FAERS Safety Report 7602503-5 (Version None)
Quarter: 2011Q2

REPORT INFORMATION
  Report Type: 
  Country: None (occurrence: None)
  Receive Date: 20110601
  Receipt Date: 20110309
  Transmission Date: 20111010
  Serious: Yes (Other)
  Sender: FDA-Public Use
  Company Number: 270997USA

PATIENT
  Sex: Female

DRUGS (1)
  1. SEASONIQUE [Suspect]
     Indication: CONTRACEPTION
     Dosage: (1 IN 24 HR)

REACTIONS (3)
  - THROMBOSIS [None]
  - DYSPNOEA [None]
  - APHASIA [None]
